FAERS Safety Report 26009240 (Version 1)
Quarter: 2025Q4

REPORT INFORMATION
  Report Type: Report from Study
  Country: US (occurrence: US)
  Receive Date: 20251107
  Receipt Date: 20251107
  Transmission Date: 20260118
  Serious: Yes (Other)
  Sender: ALEXION PHARMACEUTICALS
  Company Number: 202506USA000271US

PATIENT
  Age: 58 Year
  Sex: Female

DRUGS (1)
  1. STRENSIQ [Suspect]
     Active Substance: ASFOTASE ALFA
     Indication: Phosphorus metabolism disorder
     Dosage: 1 MILLIGRAM/KILOGRAM 6 TIMES PER WEEK
     Route: 065

REACTIONS (10)
  - Exophthalmos [Unknown]
  - Gastrooesophageal reflux disease [Unknown]
  - Gastrointestinal disorder [Unknown]
  - Pain [Unknown]
  - Diplopia [Unknown]
  - Musculoskeletal stiffness [Unknown]
  - Pain in extremity [Unknown]
  - Fine motor skill dysfunction [Unknown]
  - Neck pain [Unknown]
  - Arthralgia [Unknown]
